FAERS Safety Report 21890137 (Version 1)
Quarter: 2023Q1

REPORT INFORMATION
  Report Type: Report from Study
  Country: US (occurrence: None)
  Receive Date: 20230120
  Receipt Date: 20230120
  Transmission Date: 20230417
  Serious: Yes (Hospitalization)
  Sender: FDA-Public Use
  Company Number: US-Eisai Medical Research-EC-2022-129837

PATIENT
  Age: 67 Year
  Sex: Female

DRUGS (2)
  1. LENVIMA [Suspect]
     Active Substance: LENVATINIB
     Indication: Endometrial cancer
     Route: 048
     Dates: start: 20221107, end: 202301
  2. LENVIMA [Suspect]
     Active Substance: LENVATINIB
     Indication: Lymphoma

REACTIONS (3)
  - Blood sodium decreased [Unknown]
  - Diarrhoea [Unknown]
  - Hypothyroidism [Unknown]

NARRATIVE: CASE EVENT DATE: 20221201
